FAERS Safety Report 6386383-4 (Version None)
Quarter: 2009Q3

REPORT INFORMATION
  Report Type: 
  Country: None (occurrence: None)
  Receive Date: 20090930
  Receipt Date: 20090930
  Transmission Date: 20100115
  Serious: Yes (Death)
  Sender: FDA-Public Use
  Company Number: None

PATIENT
  Age: 37 Year
  Sex: Female
  Weight: 67.1324 kg

DRUGS (2)
  1. WELLBUTRIN [Suspect]
     Indication: ANXIETY
  2. KLONOPIN [Suspect]

REACTIONS (6)
  - ANXIETY [None]
  - CARDIO-RESPIRATORY ARREST [None]
  - CHILLS [None]
  - DRUG INTERACTION [None]
  - DRUG TOXICITY [None]
  - UNRESPONSIVE TO STIMULI [None]
